FAERS Safety Report 17750270 (Version 10)
Quarter: 2022Q4

REPORT INFORMATION
  Report Type: Spontaneous
  Country: US (occurrence: US)
  Receive Date: 20200506
  Receipt Date: 20221024
  Transmission Date: 20230113
  Serious: Yes (Disabling, Other)
  Sender: FDA-Public Use
  Company Number: US-PFIZER INC-2019281552

PATIENT
  Age: 50 Year
  Sex: Female

DRUGS (1)
  1. PREMARIN [Suspect]
     Active Substance: ESTROGENS, CONJUGATED
     Indication: Progesterone decreased
     Dosage: UNK, 1X/DAY
     Dates: start: 2010

REACTIONS (8)
  - Multiple fractures [Unknown]
  - Sinusitis [Unknown]
  - Fine motor skill dysfunction [Unknown]
  - Dysgraphia [Unknown]
  - Feeling abnormal [Unknown]
  - Libido increased [Unknown]
  - Hot flush [Unknown]
  - Off label use [Unknown]

NARRATIVE: CASE EVENT DATE: 20100101
